FAERS Safety Report 20634933 (Version 1)
Quarter: 2022Q1

REPORT INFORMATION
  Report Type: Spontaneous
  Country: US (occurrence: None)
  Receive Date: 20220325
  Receipt Date: 20220325
  Transmission Date: 20220423
  Serious: No
  Sender: FDA-Public Use
  Company Number: 2022A087070

PATIENT
  Sex: Male

DRUGS (1)
  1. BUDESONIDE\FORMOTEROL\GLYCOPYRRONIUM [Suspect]
     Active Substance: BUDESONIDE\FORMOTEROL\GLYCOPYRRONIUM
     Indication: COVID-19 pneumonia
     Dosage: 160/9/4.8 MCG TWO PUFFS TWICE A DAY
     Route: 055

REACTIONS (2)
  - Bronchospasm [Recovered/Resolved]
  - Off label use [Unknown]
